FAERS Safety Report 18113791 (Version 1)
Quarter: 2020Q3

REPORT INFORMATION
  Report Type: Spontaneous
  Country: US (occurrence: US)
  Receive Date: 20200805
  Receipt Date: 20200805
  Transmission Date: 20201103
  Serious: No
  Sender: FDA-Public Use
  Company Number: None

PATIENT
  Age: 78 Year
  Sex: Female
  Weight: 71 kg

DRUGS (17)
  1. LOVASTATIN. [Concomitant]
     Active Substance: LOVASTATIN
  2. MIRTAZAPINE. [Concomitant]
     Active Substance: MIRTAZAPINE
  3. BRAFTOVI [Suspect]
     Active Substance: ENCORAFENIB
     Indication: COLON CANCER
     Route: 048
     Dates: start: 20190614, end: 20200805
  4. HUMULIN NOS [Concomitant]
     Active Substance: INSULIN HUMAN
  5. HYDROCHLOROTHIAZIDE. [Concomitant]
     Active Substance: HYDROCHLOROTHIAZIDE
  6. MAG?OXIDE [Concomitant]
     Active Substance: MAGNESIUM OXIDE
  7. MARINOL [Concomitant]
     Active Substance: DRONABINOL
  8. NOVOLIN NOS [Concomitant]
     Active Substance: INSULIN HUMAN
  9. LOPERAMIDE [Concomitant]
     Active Substance: LOPERAMIDE
  10. POTASSIUM CHLORIDE. [Concomitant]
     Active Substance: POTASSIUM CHLORIDE
  11. ASPIRIN. [Concomitant]
     Active Substance: ASPIRIN
  12. HYDROMORPHONE [Concomitant]
     Active Substance: HYDROMORPHONE
  13. ZOFRAN [Concomitant]
     Active Substance: ONDANSETRON HYDROCHLORIDE
  14. ZETIA [Concomitant]
     Active Substance: EZETIMIBE
  15. IBUPROFEN. [Concomitant]
     Active Substance: IBUPROFEN
  16. LISINOPRIL. [Concomitant]
     Active Substance: LISINOPRIL
  17. PROCHLORPERAZINE. [Concomitant]
     Active Substance: PROCHLORPERAZINE

REACTIONS (1)
  - Hospice care [None]

NARRATIVE: CASE EVENT DATE: 20200805
